FAERS Safety Report 12982345 (Version 1)
Quarter: 2016Q4

REPORT INFORMATION
  Report Type: Spontaneous
  Country: US (occurrence: US)
  Receive Date: 20161128
  Receipt Date: 20161128
  Transmission Date: 20170207
  Serious: No
  Sender: FDA-Public Use
  Company Number: None

PATIENT
  Age: 36 Year
  Sex: Female

DRUGS (1)
  1. GILENYA [Suspect]
     Active Substance: FINGOLIMOD HYDROCHLORIDE
     Indication: MULTIPLE SCLEROSIS
     Route: 048
     Dates: start: 20160330

REACTIONS (5)
  - Oropharyngeal pain [None]
  - Headache [None]
  - Muscular weakness [None]
  - Pain in extremity [None]
  - Arthralgia [None]

NARRATIVE: CASE EVENT DATE: 20161023
